FAERS Safety Report 5132622-7 (Version None)
Quarter: 2006Q4

REPORT INFORMATION
  Report Type: 
  Country: None (occurrence: None)
  Receive Date: 20061023
  Receipt Date: 20061010
  Transmission Date: 20070319
  Serious: Yes (Other)
  Sender: FDA-Public Use
  Company Number: PHBS2006NL15819

PATIENT

DRUGS (1)
  1. EMSELEX EXTENDED RELEASE [Suspect]
     Route: 065

REACTIONS (2)
  - AMNESIA [None]
  - DIZZINESS [None]
